FAERS Safety Report 13571142 (Version 1)
Quarter: 2017Q2

REPORT INFORMATION
  Report Type: Spontaneous
  Country: US (occurrence: US)
  Receive Date: 20170522
  Receipt Date: 20170522
  Transmission Date: 20170830
  Serious: No
  Sender: FDA-Public Use
  Company Number: None

PATIENT
  Age: 54 Year
  Sex: Female

DRUGS (1)
  1. RIBAVIRIN TAB 200MG [Suspect]
     Active Substance: RIBAVIRIN

REACTIONS (1)
  - Fatigue [None]

NARRATIVE: CASE EVENT DATE: 20170520
